FAERS Safety Report 8567270-X (Version None)
Quarter: 2012Q3

REPORT INFORMATION
  Report Type: 
  Country: None (occurrence: None)
  Receive Date: 20120803
  Receipt Date: 20120725
  Transmission Date: 20120928
  Serious: Yes (Life-Threatening, Other)
  Sender: FDA-Public Use
  Company Number: CHPA2012US016728

PATIENT
  Age: 54 Year
  Sex: Male

DRUGS (4)
  1. EXCEDRIN EXTRA STRENGTH TABLETS [Suspect]
     Indication: HEADACHE
     Dosage: 2 TO 3 DF, PRN
     Route: 048
     Dates: start: 19670101
  2. TYLENOL W/ CODEINE NO. 3 [Concomitant]
     Dosage: UNK, UNK
     Route: 048
  3. IBUPROFEN [Concomitant]
     Dosage: UNK, UNK
     Route: 048
  4. EXCEDRIN (MIGRAINE) [Concomitant]
     Dosage: UNK, UNK
     Route: 048

REACTIONS (7)
  - CRUSH INJURY [None]
  - FRACTURE [None]
  - HEAD INJURY [None]
  - INJURY [None]
  - NERVE INJURY [None]
  - GUN SHOT WOUND [None]
  - INCORRECT DOSE ADMINISTERED [None]
